FAERS Safety Report 12697899 (Version 1)
Quarter: 2016Q3

REPORT INFORMATION
  Report Type: Spontaneous
  Country: US (occurrence: None)
  Receive Date: 20160829
  Receipt Date: 20160829
  Transmission Date: 20161109
  Serious: No
  Sender: FDA-Public Use
  Company Number: None

PATIENT
  Age: 60 Year
  Sex: Male
  Weight: 84.82 kg

DRUGS (2)
  1. ROSUVASTATIN. [Suspect]
     Active Substance: ROSUVASTATIN
     Indication: HYPERLIPIDAEMIA
     Route: 048
     Dates: start: 20160420
  2. OMEGA 3 FATTY ACIDS [Concomitant]
     Active Substance: OMEGA-3 FATTY ACIDS

REACTIONS (2)
  - Myalgia [None]
  - Myopathy [None]

NARRATIVE: CASE EVENT DATE: 20110504
